FAERS Safety Report 26031780 (Version 1)
Quarter: 2025Q4

REPORT INFORMATION
  Report Type: Spontaneous
  Country: US (occurrence: US)
  Receive Date: 20251112
  Receipt Date: 20251112
  Transmission Date: 20260118
  Serious: Yes (Other)
  Sender: SANOFI AVENTIS
  Company Number: US-SA-2025SA336108

PATIENT
  Age: 80 Year
  Sex: Female
  Weight: 84.55 kg

DRUGS (11)
  1. DUPIXENT [Suspect]
     Active Substance: DUPILUMAB
     Indication: Neurodermatitis
     Dosage: 300 MG, QOW
     Route: 058
  2. POTASSIUM CHLORIDE [Concomitant]
     Active Substance: POTASSIUM CHLORIDE
  3. FERROUS SULFATE [Concomitant]
     Active Substance: FERROUS SULFATE
     Dosage: 137(45) MG
  4. COLACE [Concomitant]
     Active Substance: DOCUSATE SODIUM
  5. LOSARTAN POTASSIUM [Concomitant]
     Active Substance: LOSARTAN POTASSIUM
  6. CLOBETASOL [Concomitant]
     Active Substance: CLOBETASOL
  7. MUPIROCIN [Concomitant]
     Active Substance: MUPIROCIN
  8. CHLORTHALIDONE [Concomitant]
     Active Substance: CHLORTHALIDONE
  9. DESVENLAFAXINE [Concomitant]
     Active Substance: DESVENLAFAXINE
     Dosage: 100 MG TAB ER 24H
  10. ASPIRIN [Concomitant]
     Active Substance: ASPIRIN
  11. ESOMEPRAZOLE MAGNESIUM [Concomitant]
     Active Substance: ESOMEPRAZOLE MAGNESIUM

REACTIONS (3)
  - Cerebrovascular accident [Unknown]
  - Seizure [Unknown]
  - Rectal prolapse [Recovered/Resolved]

NARRATIVE: CASE EVENT DATE: 20240101
